FAERS Safety Report 24194525 (Version 1)
Quarter: 2024Q3

REPORT INFORMATION
  Report Type: Spontaneous
  Country: TR (occurrence: None)
  Receive Date: 20240809
  Receipt Date: 20240809
  Transmission Date: 20241017
  Serious: Yes (Other)
  Sender: ASTRAZENECA
  Company Number: 2024A177635

PATIENT
  Age: 37 Year
  Sex: Male

DRUGS (2)
  1. SEROQUEL [Suspect]
     Active Substance: QUETIAPINE FUMARATE
     Dosage: 20 TABLETS OF SEROQUEL 100 MG
     Route: 048
  2. RIVOCLON [Concomitant]
     Dosage: 20 TABLETS OF 2 MG

REACTIONS (2)
  - Eye movement disorder [Unknown]
  - Overdose [Unknown]
